FAERS Safety Report 8601515-2 (Version None)
Quarter: 2012Q3

REPORT INFORMATION
  Report Type: 
  Country: None (occurrence: None)
  Receive Date: 20120817
  Receipt Date: 20111201
  Transmission Date: 20120928
  Serious: Yes (Hospitalization)
  Sender: FDA-Public Use
  Company Number: US-BRISTOL-MYERS SQUIBB COMPANY-16197501

PATIENT
  Age: 37 Year
  Sex: Male

DRUGS (6)
  1. SPRYCEL [Suspect]
     Indication: LEUKAEMIA
     Dosage: REFILL FOR 6 TIMES
     Route: 048
     Dates: start: 20060201, end: 20111023
  2. POTASSIUM [Concomitant]
  3. LASIX [Concomitant]
     Dates: start: 20110401
  4. PREDNISONE TAB [Concomitant]
     Dates: start: 20110401
  5. REVATIO [Concomitant]
     Indication: PULMONARY ARTERIAL HYPERTENSION
     Dates: start: 20110601
  6. PHENERGAN HCL [Concomitant]

REACTIONS (2)
  - PULMONARY OEDEMA [None]
  - PULMONARY ARTERIAL HYPERTENSION [None]
